FAERS Safety Report 7425757-7 (Version None)
Quarter: 2011Q2

REPORT INFORMATION
  Report Type: 
  Country: None (occurrence: None)
  Receive Date: 20110420
  Receipt Date: 20110405
  Transmission Date: 20111010
  Serious: Yes (Death)
  Sender: FDA-Public Use
  Company Number: US-CELGENEUS-163-21880-11040536

PATIENT
  Sex: Male

DRUGS (14)
  1. REVLIMID [Suspect]
     Indication: MULTIPLE MYELOMA
     Dosage: 10 MILLIGRAM
     Route: 048
     Dates: start: 20101230, end: 20110403
  2. ASPIRIN [Concomitant]
     Dosage: 325 MILLIGRAM
     Route: 065
  3. ASACOL [Concomitant]
     Dosage: 400 MILLIGRAM
     Route: 065
  4. COREG [Concomitant]
     Dosage: 25 MILLIGRAM
     Route: 065
  5. FUROSEMIDE [Concomitant]
     Dosage: 20 MILLIGRAM
     Route: 065
  6. ENTOCORT EC [Concomitant]
     Dosage: 3MG/24HR
     Route: 065
  7. LANTUS [Concomitant]
     Dosage: SOLOSTAR
     Route: 050
  8. COQ [Concomitant]
     Dosage: 100 MILLIGRAM
     Route: 065
  9. NORCO [Concomitant]
     Dosage: 7.5/325
     Route: 065
  10. SIMVASTATIN [Concomitant]
     Dosage: 10 MILLIGRAM
     Route: 065
  11. HUMALOG [Concomitant]
     Dosage: 75/25
     Route: 050
  12. ATACAND [Concomitant]
     Dosage: 32 MILLIGRAM
     Route: 065
  13. MULTI-VITAMINS [Concomitant]
     Route: 065
  14. FISH OIL [Concomitant]
     Route: 048

REACTIONS (1)
  - DEATH [None]
